FAERS Safety Report 17557395 (Version 3)
Quarter: 2020Q3

REPORT INFORMATION
  Report Type: Report from Study
  Country: US (occurrence: US)
  Receive Date: 20200318
  Receipt Date: 20200401
  Transmission Date: 20201104
  Serious: Yes (Hospitalization)
  Sender: FDA-Public Use
  Company Number: NVSC2020US077731

PATIENT
  Age: 43 Year
  Sex: Female
  Weight: 83.7 kg

DRUGS (4)
  1. CYCLOPHOSPHAMIDE. [Suspect]
     Active Substance: CYCLOPHOSPHAMIDE
     Indication: CERVIX CARCINOMA STAGE I
     Dosage: 2295 MG, BID
     Route: 042
     Dates: start: 20200225, end: 20200226
  2. PROLEUKIN [Suspect]
     Active Substance: ALDESLEUKIN
     Indication: CERVIX CARCINOMA STAGE I
     Dosage: 138 OT IUM (46 IUM,1 IN 8 HR)
     Route: 042
     Dates: start: 20200304, end: 20200306
  3. FLUDARABINE PHOSPHATE. [Suspect]
     Active Substance: FLUDARABINE PHOSPHATE
     Indication: CERVIX CARCINOMA STAGE I
     Dosage: 31.4 MG
     Route: 042
     Dates: start: 20200227, end: 20200302
  4. BACTRIM [Concomitant]
     Active Substance: SULFAMETHOXAZOLE\TRIMETHOPRIM
     Indication: PRODUCT USED FOR UNKNOWN INDICATION
     Dosage: UNK
     Route: 065
     Dates: start: 20200311

REACTIONS (3)
  - Mental status changes [Recovered/Resolved]
  - Acute kidney injury [Not Recovered/Not Resolved]
  - Thrombocytopenia [Recovered/Resolved]

NARRATIVE: CASE EVENT DATE: 20200304
